FAERS Safety Report 12446797 (Version 4)
Quarter: 2017Q3

REPORT INFORMATION
  Report Type: Spontaneous
  Country: DE (occurrence: DE)
  Receive Date: 20160608
  Receipt Date: 20170816
  Transmission Date: 20171127
  Serious: Yes (Hospitalization, Other)
  Sender: FDA-Public Use
  Company Number: DE-AMGEN-DEUSP2016072293

PATIENT
  Age: 63 Year
  Sex: Male

DRUGS (1)
  1. ENBREL [Suspect]
     Active Substance: ETANERCEPT
     Indication: PSORIATIC ARTHROPATHY
     Dosage: 50 MG, QWK
     Route: 065
     Dates: start: 20160517, end: 201702

REACTIONS (7)
  - Pruritus generalised [Recovered/Resolved]
  - Psoriasis [Not Recovered/Not Resolved]
  - Rash [Unknown]
  - Hypoaesthesia [Unknown]
  - Spinal disorder [Unknown]
  - Dizziness [Unknown]
  - Condition aggravated [Not Recovered/Not Resolved]

NARRATIVE: CASE EVENT DATE: 20161201
